FAERS Safety Report 17269586 (Version 3)
Quarter: 2020Q1

REPORT INFORMATION
  Report Type: Spontaneous
  Country: US (occurrence: US)
  Receive Date: 20200114
  Receipt Date: 20200206
  Transmission Date: 20200409
  Serious: Yes (Other)
  Sender: FDA-Public Use
  Company Number: US-ALLERGAN-2001149US

PATIENT
  Sex: Female

DRUGS (1)
  1. LILETTA [Suspect]
     Active Substance: LEVONORGESTREL
     Indication: CONTRACEPTION
     Dosage: 52 MG, SINGLE
     Route: 015
     Dates: start: 201806

REACTIONS (6)
  - Amylase increased [Unknown]
  - Pregnancy [Unknown]
  - Drug ineffective [Unknown]
  - Haematoma [Unknown]
  - Economic problem [Unknown]
  - Emotional disorder [Unknown]
